FAERS Safety Report 6892382-6 (Version None)
Quarter: 2010Q3

REPORT INFORMATION
  Report Type: 
  Country: None (occurrence: None)
  Receive Date: 20100731
  Receipt Date: 20080430
  Transmission Date: 20110219
  Serious: No
  Sender: FDA-Public Use
  Company Number: US-PFIZER INC-2008024626

PATIENT
  Sex: Female
  Weight: 56.8 kg

DRUGS (3)
  1. NORVASC [Suspect]
     Indication: HYPERTENSION
     Route: 048
     Dates: start: 20050101
  2. AMLODIPINE [Suspect]
     Indication: HYPERTENSION
  3. SYNTHROID [Concomitant]
     Dates: start: 19580101

REACTIONS (2)
  - HEADACHE [None]
  - RASH [None]
